FAERS Safety Report 4836977-X (Version None)
Quarter: 2005Q4

REPORT INFORMATION
  Report Type: 
  Country: None (occurrence: None)
  Receive Date: 20051117
  Receipt Date: 20051107
  Transmission Date: 20060501
  Serious: Yes (Other)
  Sender: FDA-Public Use
  Company Number: 05-NIP00118

PATIENT
  Sex: Male

DRUGS (1)
  1. NIPENT [Suspect]

REACTIONS (2)
  - ANGIONEUROTIC OEDEMA [None]
  - RASH [None]
